FAERS Safety Report 8969609 (Version 2)
Quarter: 2013Q1

REPORT INFORMATION
  Report Type: Spontaneous
  Country: US (occurrence: US)
  Receive Date: 20121218
  Receipt Date: 20130129
  Transmission Date: 20140127
  Serious: Yes (Other)
  Sender: FDA-Public Use
  Company Number: US-ELI_LILLY_AND_COMPANY-US201212003592

PATIENT
  Age: 66 Year
  Sex: Female
  Weight: 81.63 kg

DRUGS (1)
  1. ZYPREXA ZYDIS [Suspect]
     Indication: SCHIZOPHRENIA
     Dosage: 20 MG, QD
     Route: 048
     Dates: start: 2002, end: 20121011

REACTIONS (2)
  - Hepatic cirrhosis [Not Recovered/Not Resolved]
  - Diabetes mellitus [Unknown]
